FAERS Safety Report 9636025 (Version 3)
Quarter: 2014Q1

REPORT INFORMATION
  Report Type: Spontaneous
  Country: US (occurrence: US)
  Receive Date: 20131021
  Receipt Date: 20140321
  Transmission Date: 20141002
  Serious: Yes (Other)
  Sender: FDA-Public Use
  Company Number: US-BAYER-2013-124309

PATIENT
  Age: 34 Year
  Sex: Female
  Weight: 69 kg

DRUGS (2)
  1. MIRENA [Suspect]
     Indication: CONTRACEPTION
     Dosage: 20 MCG/24HR, CONT
     Route: 015
     Dates: start: 20100224
  2. YASMIN [Concomitant]

REACTIONS (9)
  - Ectopic pregnancy with contraceptive device [None]
  - Drug ineffective [None]
  - Back pain [Recovering/Resolving]
  - Abdominal pain [None]
  - Fallopian tube cyst [Recovering/Resolving]
  - Vaginal haemorrhage [None]
  - Adnexa uteri cyst [None]
  - Dysmenorrhoea [None]
  - Uterine leiomyoma [None]
